FAERS Safety Report 17014479 (Version 1)
Quarter: 2019Q4

REPORT INFORMATION
  Report Type: Spontaneous
  Country: GB (occurrence: GB)
  Receive Date: 20191111
  Receipt Date: 20191111
  Transmission Date: 20200122
  Serious: Yes (Hospitalization)
  Sender: FDA-Public Use
  Company Number: GB-ACCORD-160135

PATIENT
  Age: 82 Year
  Sex: Male
  Weight: 85.3 kg

DRUGS (6)
  1. LANSOPRAZOLE. [Concomitant]
     Active Substance: LANSOPRAZOLE
     Dosage: N/A
  2. SIMVASTATIN. [Concomitant]
     Active Substance: SIMVASTATIN
     Dosage: N/A
  3. WARFARIN [Concomitant]
     Active Substance: WARFARIN
     Dosage: N/A
  4. FINASTERIDE. [Suspect]
     Active Substance: FINASTERIDE
     Indication: PRODUCT USED FOR UNKNOWN INDICATION
     Dosage: STRENGTH: 5MG
     Route: 048
     Dates: start: 20191003, end: 20191014
  5. TAMSULOSIN/TAMSULOSIN HYDROCHLORIDE [Concomitant]
     Dosage: N/A
  6. SOLIFENACIN/SOLIFENACIN SUCCINATE [Concomitant]
     Dosage: N/A

REACTIONS (2)
  - International normalised ratio increased [Recovered/Resolved]
  - Malaise [Unknown]
